FAERS Safety Report 5948786-9 (Version None)
Quarter: 2008Q4

REPORT INFORMATION
  Report Type: 
  Country: None (occurrence: None)
  Receive Date: 20081107
  Receipt Date: 20081029
  Transmission Date: 20090506
  Serious: Yes (Hospitalization, Other)
  Sender: FDA-Public Use
  Company Number: 2008AP002498

PATIENT
  Age: 80 Year
  Sex: Female

DRUGS (1)
  1. MEGESTROL ACETATE [Suspect]
     Indication: DECREASED APPETITE
     Dosage: 400 MG;QD

REACTIONS (21)
  - ADRENAL INSUFFICIENCY [None]
  - ASTHENIA [None]
  - BREATH SOUNDS ABNORMAL [None]
  - CACHEXIA [None]
  - CARDIAC MURMUR [None]
  - CEREBRAL ATROPHY [None]
  - COGNITIVE DISORDER [None]
  - COUGH [None]
  - DELIRIUM [None]
  - DISTURBANCE IN ATTENTION [None]
  - DYSPNOEA [None]
  - FATIGUE [None]
  - GAIT DISTURBANCE [None]
  - HYPOTENSION [None]
  - KYPHOSIS [None]
  - MEMORY IMPAIRMENT [None]
  - PNEUMONIA [None]
  - RESPIRATORY ACIDOSIS [None]
  - RESTRICTIVE PULMONARY DISEASE [None]
  - SINUS TACHYCARDIA [None]
  - WEIGHT DECREASED [None]
